FAERS Safety Report 17671045 (Version 1)
Quarter: 2020Q2

REPORT INFORMATION
  Report Type: Spontaneous
  Country: US (occurrence: US)
  Receive Date: 20200415
  Receipt Date: 20200415
  Transmission Date: 20200713
  Serious: No
  Sender: FDA-Public Use
  Company Number: US-ASTRAZENECA-2020SE44307

PATIENT
  Sex: Female
  Weight: 95.3 kg

DRUGS (5)
  1. XIGDUO XR [Suspect]
     Active Substance: DAPAGLIFLOZIN PROPANEDIOL\METFORMIN HYDROCHLORIDE
     Indication: DIABETES MELLITUS
     Dosage: 5/500MG TWO TIMES A DAY
     Route: 048
  2. XIGDUO XR [Suspect]
     Active Substance: DAPAGLIFLOZIN PROPANEDIOL\METFORMIN HYDROCHLORIDE
     Indication: DIABETES MELLITUS
     Dosage: DID NOT ALWAYS TAKE THE EVENING DOSE DEPENDING ON HER MEALS AND HER SUGARS
     Route: 048
  3. VICTOZA [Concomitant]
     Active Substance: LIRAGLUTIDE
  4. XIGDUO XR [Suspect]
     Active Substance: DAPAGLIFLOZIN PROPANEDIOL\METFORMIN HYDROCHLORIDE
     Indication: DIABETES MELLITUS
     Dosage: 5MG/1000MG TWO TIMES A DAY
     Route: 048
     Dates: start: 201903
  5. LANTUS [Concomitant]
     Active Substance: INSULIN GLARGINE

REACTIONS (3)
  - Off label use [Unknown]
  - Viral infection [Unknown]
  - Intentional product misuse [Unknown]
